FAERS Safety Report 18326697 (Version 6)
Quarter: 2022Q1

REPORT INFORMATION
  Report Type: Report from Study
  Country: CA (occurrence: CA)
  Receive Date: 20200929
  Receipt Date: 20220211
  Transmission Date: 20220423
  Serious: Yes (Hospitalization)
  Sender: FDA-Public Use
  Company Number: CA-JNJFOC-20200930696

PATIENT
  Age: 38 Year
  Sex: Female
  Weight: 69.462 kg

DRUGS (2)
  1. STELARA [Suspect]
     Active Substance: USTEKINUMAB
     Indication: Crohn^s disease
     Route: 058
     Dates: start: 20180726
  2. STELARA [Suspect]
     Active Substance: USTEKINUMAB
     Route: 058

REACTIONS (7)
  - Bartholin^s abscess [Recovered/Resolved]
  - Nervous system disorder [Unknown]
  - Hypoaesthesia [Unknown]
  - Tremor [Unknown]
  - Pain in extremity [Unknown]
  - Visual impairment [Unknown]
  - Fatigue [Unknown]

NARRATIVE: CASE EVENT DATE: 20200909
